FAERS Safety Report 6561840-6 (Version None)
Quarter: 2010Q1

REPORT INFORMATION
  Report Type: 
  Country: None (occurrence: None)
  Receive Date: 20100130
  Receipt Date: 20091030
  Transmission Date: 20100710
  Serious: No
  Sender: FDA-Public Use
  Company Number: US-ABBOTT-09P-163-0606670-00

PATIENT
  Sex: Male
  Weight: 93.07 kg

DRUGS (5)
  1. HUMIRA [Suspect]
     Indication: RHEUMATOID ARTHRITIS
     Route: 058
     Dates: start: 20040701, end: 20061201
  2. HUMIRA [Suspect]
     Route: 058
     Dates: start: 20090701
  3. METHOTREXATE [Concomitant]
     Indication: RHEUMATOID ARTHRITIS
     Dates: start: 20060101
  4. FOLIC ACID [Concomitant]
     Indication: RHEUMATOID ARTHRITIS
  5. UNKNOWN MEDICATION [Concomitant]
     Indication: RHEUMATOID ARTHRITIS
     Route: 042

REACTIONS (4)
  - ARTHRALGIA [None]
  - FINGER DEFORMITY [None]
  - RHEUMATOID ARTHRITIS [None]
  - RHEUMATOID NODULE [None]
